FAERS Safety Report 5412688-7 (Version None)
Quarter: 2007Q3

REPORT INFORMATION
  Report Type: 
  Country: None (occurrence: None)
  Receive Date: 20070813
  Receipt Date: 20070806
  Transmission Date: 20080115
  Serious: Yes (Death, Hospitalization, Disabling)
  Sender: FDA-Public Use
  Company Number: BR-SHR-BR-2007-005017

PATIENT
  Age: 24 Year
  Sex: Male

DRUGS (1)
  1. BETAFERON [Suspect]
     Dosage: 8 MIU, EVERY 2D
     Route: 058
     Dates: start: 20060901

REACTIONS (7)
  - ASTHENIA [None]
  - BRAIN DAMAGE [None]
  - CARDIAC ARREST [None]
  - COMA [None]
  - CONDITION AGGRAVATED [None]
  - DYSPNOEA [None]
  - SWELLING [None]
